FAERS Safety Report 24321536 (Version 1)
Quarter: 2024Q3

REPORT INFORMATION
  Report Type: Spontaneous
  Country: AU (occurrence: AU)
  Receive Date: 20240916
  Receipt Date: 20240916
  Transmission Date: 20241016
  Serious: Yes (Other)
  Sender: ROCHE
  Company Number: AU-ROCHE-10000080728

PATIENT
  Sex: Female
  Weight: 69 kg

DRUGS (2)
  1. ACTEMRA [Suspect]
     Active Substance: TOCILIZUMAB
     Indication: Takayasu^s arteritis
     Dosage: (8MG/KG) MONTHLY ONGOING (FOR AT LEAST ANOTHER 12 MONTHS)
     Route: 042
  2. METHOTREXATE [Suspect]
     Active Substance: METHOTREXATE
     Indication: Product used for unknown indication
     Route: 065

REACTIONS (3)
  - Inflammatory marker increased [Unknown]
  - Disease progression [Unknown]
  - Off label use [Unknown]
